FAERS Safety Report 8690767 (Version 3)
Quarter: 2014Q1

REPORT INFORMATION
  Report Type: Spontaneous
  Country: US (occurrence: US)
  Receive Date: 20120727
  Receipt Date: 20140320
  Transmission Date: 20141002
  Serious: Yes (Hospitalization, Other)
  Sender: FDA-Public Use
  Company Number: US-ASTRAZENECA-2010SE48103

PATIENT
  Age: 75 Year
  Sex: Female
  Weight: 80.7 kg

DRUGS (23)
  1. NEXIUM [Suspect]
     Indication: GASTROOESOPHAGEAL REFLUX DISEASE
     Route: 048
     Dates: start: 2001, end: 20140311
  2. NEXIUM [Suspect]
     Indication: GASTROOESOPHAGEAL REFLUX DISEASE
     Route: 048
     Dates: start: 2001, end: 20140311
  3. PRILOSEC [Suspect]
     Indication: GASTROOESOPHAGEAL REFLUX DISEASE
     Route: 048
  4. PRILOSEC [Suspect]
     Indication: GASTROOESOPHAGEAL REFLUX DISEASE
     Route: 048
  5. PRILOSEC [Suspect]
     Indication: GASTROOESOPHAGEAL REFLUX DISEASE
     Dosage: DAILY
     Route: 048
     Dates: start: 1999
  6. PRILOSEC [Suspect]
     Indication: GASTROOESOPHAGEAL REFLUX DISEASE
     Dosage: DAILY
     Route: 048
     Dates: start: 1999
  7. LISINOPRIL [Suspect]
     Route: 048
     Dates: end: 20050707
  8. BENADRYL [Suspect]
     Route: 065
  9. ANTIBIOTICS [Suspect]
     Route: 065
  10. AGGRENOX [Concomitant]
     Indication: CEREBROVASCULAR ACCIDENT PROPHYLAXIS
     Route: 048
     Dates: start: 20130411
  11. SINGULAIR [Concomitant]
     Indication: CHRONIC OBSTRUCTIVE PULMONARY DISEASE
     Route: 048
     Dates: start: 2002
  12. SINGULAIR [Concomitant]
     Indication: SLEEP APNOEA SYNDROME
     Route: 048
     Dates: start: 2002
  13. SINGULAIR [Concomitant]
     Indication: ASTHMA
     Route: 048
     Dates: start: 2002
  14. ZYRTEC OTC [Concomitant]
     Indication: SINUSITIS
     Route: 048
     Dates: start: 2002
  15. RESTASIS OPTH [Concomitant]
     Indication: MACULAR DEGENERATION
     Dosage: 1 DROP EACH EYE BID
     Route: 047
     Dates: start: 2008
  16. RESTASIS OPTH [Concomitant]
     Indication: GLAUCOMA
     Dosage: 1 DROP EACH EYE BID
     Route: 047
     Dates: start: 2008
  17. RESTASIS OPTH [Concomitant]
     Indication: DRY EYE
     Dosage: 1 DROP EACH EYE BID
     Route: 047
     Dates: start: 2008
  18. OPTIVE OPTH [Concomitant]
     Indication: DRY EYE
     Dosage: 1 DROP BOTH EYES BID
     Route: 047
     Dates: start: 2008
  19. OPTIVE OPTH [Concomitant]
     Indication: GLAUCOMA
     Dosage: 1 DROP BOTH EYES BID
     Route: 047
     Dates: start: 2008
  20. OPTIVE OPTH [Concomitant]
     Indication: MACULAR DEGENERATION
     Dosage: 1 DROP BOTH EYES BID
     Route: 047
     Dates: start: 2008
  21. REFRESH OINTMENT [Concomitant]
     Indication: DRY EYE
     Dosage: DAILY
     Route: 050
     Dates: start: 2008
  22. PREVACID [Concomitant]
  23. BIRTH CONTROL PILLS SUCHOR HORMONES SUCH AS ESTROGEN OR PROGESTERONE [Concomitant]

REACTIONS (47)
  - Pneumonia fungal [Unknown]
  - Rectocele [Unknown]
  - Pancreatic steatosis [Unknown]
  - Vaginal prolapse [Unknown]
  - Tendon rupture [Unknown]
  - Joint injury [Unknown]
  - Hypoaesthesia [Unknown]
  - Blood pressure increased [Unknown]
  - Paralysis [Unknown]
  - Pneumonia [Unknown]
  - Cerebrovascular accident [Unknown]
  - Hemiplegia [Unknown]
  - Mobility decreased [Unknown]
  - Stress urinary incontinence [Unknown]
  - Speech disorder [Unknown]
  - Dyspepsia [Unknown]
  - Muscular weakness [Unknown]
  - Muscular weakness [Unknown]
  - Urinary tract infection [Unknown]
  - Chronic obstructive pulmonary disease [Unknown]
  - Bronchitis [Unknown]
  - Dyspnoea [Unknown]
  - Emphysema [Unknown]
  - Chest pain [Unknown]
  - Intervertebral disc degeneration [Unknown]
  - Intervertebral disc protrusion [Unknown]
  - Bronchiectasis [Unknown]
  - Sinusitis [Unknown]
  - Haematuria [Unknown]
  - Neck pain [Unknown]
  - Back pain [Unknown]
  - Arthritis [Unknown]
  - Aortic arteriosclerosis [Unknown]
  - Dyspepsia [Unknown]
  - Aphagia [Unknown]
  - Hypotension [Unknown]
  - Influenza [Unknown]
  - Macular degeneration [Unknown]
  - Dysphagia [Unknown]
  - Abdominal discomfort [Unknown]
  - Vertigo [Unknown]
  - Dry mouth [Unknown]
  - Headache [Unknown]
  - Dizziness [Unknown]
  - Drug dose omission [Unknown]
  - Intentional drug misuse [Unknown]
  - Drug ineffective [Unknown]
